FAERS Safety Report 4743673-6 (Version None)
Quarter: 2005Q3

REPORT INFORMATION
  Report Type: 
  Country: None (occurrence: None)
  Receive Date: 20050809
  Receipt Date: 20050727
  Transmission Date: 20060218
  Serious: Yes (Life-Threatening, Hospitalization, Other)
  Sender: FDA-Public Use
  Company Number: HQWYE460702MAY05

PATIENT
  Age: 33 Year
  Sex: Male

DRUGS (4)
  1. TACROLIMUS, CONTROL FOR SIROLIMUS (TACROLIMUS, CONTROL FOR SIROLIMUS, [Suspect]
     Indication: PROPHYLAXIS AGAINST TRANSPLANT REJECTION
     Dosage: VARIABLE,BD
     Route: 048
     Dates: start: 20050411
  2. CORTICOSTEROID NOS [Suspect]
     Indication: PROPHYLAXIS AGAINST TRANSPLANT REJECTION
     Dosage: VARIABLE,BD
     Route: 048
  3. MYCOPHENOLATE MOFETIL [Suspect]
     Indication: PROPHYLAXIS AGAINST TRANSPLANT REJECTION
     Dosage: VARIABLE, BD
     Route: 048
  4. ZENAPAX [Suspect]
     Indication: PROPHYLAXIS AGAINST TRANSPLANT REJECTION
     Dosage: VARIABLE, BD

REACTIONS (11)
  - ACUTE CORONARY SYNDROME [None]
  - COMPLICATIONS OF TRANSPLANTED KIDNEY [None]
  - CORONARY ARTERY STENOSIS [None]
  - GASTRIC ULCER [None]
  - HAEMATOCRIT DECREASED [None]
  - HAEMODIALYSIS [None]
  - HAEMOGLOBIN DECREASED [None]
  - MYOCARDIAL ISCHAEMIA [None]
  - PSEUDOMONAL SEPSIS [None]
  - RED BLOOD CELL COUNT DECREASED [None]
  - WHITE BLOOD CELL COUNT INCREASED [None]
